FAERS Safety Report 5712227-7 (Version None)
Quarter: 2008Q2

REPORT INFORMATION
  Report Type: 
  Country: None (occurrence: None)
  Receive Date: 20080422
  Receipt Date: 20080410
  Transmission Date: 20081010
  Serious: Yes (Hospitalization, Other)
  Sender: FDA-Public Use
  Company Number: US-JNJFOC-20080403883

PATIENT
  Sex: Female
  Weight: 65.77 kg

DRUGS (13)
  1. DURAGESIC-100 [Suspect]
     Dosage: AS NEEDED
     Route: 062
  2. DURAGESIC-100 [Suspect]
     Route: 062
  3. DURAGESIC-100 [Suspect]
     Route: 062
  4. DURAGESIC-100 [Suspect]
     Dosage: TWO 100 UG/HR PATCHES
     Route: 062
  5. DURAGESIC-100 [Suspect]
     Dosage: 100 UG/HR   75 UG/HR
     Route: 062
  6. DURAGESIC-100 [Suspect]
     Dosage: 100 UG/HR 50 UG/HR
     Route: 062
  7. DURAGESIC-100 [Suspect]
     Dosage: 100UG/HR   25 UG/HR
     Route: 062
  8. DURAGESIC-100 [Suspect]
     Route: 062
  9. DURAGESIC-100 [Suspect]
     Route: 062
  10. DURAGESIC-100 [Suspect]
     Route: 062
  11. DURAGESIC-100 [Suspect]
     Indication: BACK PAIN
     Route: 062
  12. BACLOFEN [Concomitant]
     Indication: MUSCLE SPASMS
     Route: 048
  13. ZANAFLEX [Concomitant]
     Indication: MUSCLE SPASMS
     Route: 048

REACTIONS (11)
  - CARPAL TUNNEL SYNDROME [None]
  - COMA [None]
  - DEPRESSION [None]
  - HYPERSOMNIA [None]
  - INAPPROPRIATE SCHEDULE OF DRUG ADMINISTRATION [None]
  - INTRACRANIAL ANEURYSM [None]
  - OSTEOPOROSIS [None]
  - PNEUMONIA [None]
  - SOMNOLENCE [None]
  - THERMAL BURN [None]
  - TREATMENT NONCOMPLIANCE [None]
